FAERS Safety Report 8502201-X (Version None)
Quarter: 2012Q2

REPORT INFORMATION
  Report Type: 
  Country: None (occurrence: None)
  Receive Date: 20120405
  Receipt Date: 20101207
  Transmission Date: 20120825
  Serious: Yes (Disabling)
  Sender: FDA-Public Use
  Company Number: PHHY2010US60387

PATIENT
  Age: 59 Year
  Sex: Female
  Weight: 68.5 kg

DRUGS (2)
  1. DIOVAN [Concomitant]
  2. RECLAST [Suspect]
     Indication: OSTEOPOROSIS
     Dosage: 5 MG, INTRAVENOUS
     Route: 042
     Dates: start: 20100531

REACTIONS (6)
  - MYALGIA [None]
  - BEDRIDDEN [None]
  - HEADACHE [None]
  - PAIN [None]
  - MALAISE [None]
  - ARTHRALGIA [None]
